FAERS Safety Report 10157473 (Version 1)
Quarter: 2014Q2

REPORT INFORMATION
  Report Type: Spontaneous
  Country: US (occurrence: US)
  Receive Date: 20140507
  Receipt Date: 20140507
  Transmission Date: 20141212
  Serious: Yes (Other)
  Sender: FDA-Public Use
  Company Number: US-ACTAVIS-2014-08984

PATIENT
  Sex: Female

DRUGS (2)
  1. FENTANYL UNKNOWN STRENGTH (WATSON LABORATORIES) [Suspect]
     Indication: PRODUCT USED FOR UNKNOWN INDICATION
     Dosage: 125 MCG/HR, EVERY 48 HOURS
     Route: 062
  2. FENTANYL UNKNOWN STRENGTH (WATSON LABORATORIES) [Suspect]
     Dosage: 112 MCG/HR, EVERY 48 HOURS
     Route: 062

REACTIONS (1)
  - Adrenal suppression [Unknown]
